FAERS Safety Report 5799260-4 (Version None)
Quarter: 2008Q3

REPORT INFORMATION
  Report Type: 
  Country: None (occurrence: None)
  Receive Date: 20080701
  Receipt Date: 20080625
  Transmission Date: 20090109
  Serious: Yes (Other)
  Sender: FDA-Public Use
  Company Number: 2008016928

PATIENT
  Age: 80 Year
  Sex: Male
  Weight: 43.0917 kg

DRUGS (4)
  1. VISINE PURE TEARS (GLYCERIN, POLYETHYLENE GLYCOL, HYDROXYPROPYLMETHYLC [Suspect]
     Indication: DRY EYE
     Dosage: 1 DROP 2 TIMES A DAY, OPHTHALMIC
     Route: 047
     Dates: start: 20080529, end: 20080620
  2. VERAPAMIL [Concomitant]
  3. ASPIRIN [Concomitant]
  4. NEXIUM [Concomitant]

REACTIONS (2)
  - EYE IRRITATION [None]
  - OCULAR HYPERAEMIA [None]
